FAERS Safety Report 4325391-1 (Version None)
Quarter: 2004Q1

REPORT INFORMATION
  Report Type: 
  Country: None (occurrence: None)
  Receive Date: 20040324
  Receipt Date: 20040310
  Transmission Date: 20041129
  Serious: Yes (Hospitalization)
  Sender: FDA-Public Use
  Company Number: 04P-163-0246943-00

PATIENT
  Age: 24 Year
  Sex: Male
  Weight: 72.5755 kg

DRUGS (3)
  1. BIAXIN [Suspect]
     Indication: PNEUMONIA
     Dosage: 500 MG, 2 IN 1 D, PER ORAL
     Route: 048
     Dates: start: 20031222, end: 20031226
  2. PSEUDOEPHEDRINE HYDROCHLORIDE [Suspect]
     Dates: start: 20031222, end: 20031226
  3. COLD CARE [Suspect]
     Dates: start: 20031201, end: 20031225

REACTIONS (10)
  - ANXIETY [None]
  - CONFUSIONAL STATE [None]
  - DEHYDRATION [None]
  - DELUSION [None]
  - DYSPNOEA [None]
  - EUPHORIC MOOD [None]
  - HALLUCINATION, AUDITORY [None]
  - INSOMNIA [None]
  - PSYCHOTIC DISORDER [None]
  - SELF-INJURIOUS IDEATION [None]
